FAERS Safety Report 4574961-4 (Version None)
Quarter: 2005Q1

REPORT INFORMATION
  Report Type: 
  Country: None (occurrence: None)
  Receive Date: 20050208
  Receipt Date: 20050202
  Transmission Date: 20050727
  Serious: Yes (Hospitalization)
  Sender: FDA-Public Use
  Company Number: FR-MERCK-0502FRA00004

PATIENT
  Age: 83 Year
  Sex: Female

DRUGS (6)
  1. SINGULAIR [Suspect]
     Indication: ASTHMA
     Route: 048
  2. LERCANIDIPINE HYDROCHLORIDE [Suspect]
     Indication: HYPERTENSION
     Route: 048
  3. OMEPRAZOLE [Suspect]
     Indication: DYSPEPSIA
     Route: 048
  4. CLOPIDOGREL BISULFATE [Suspect]
     Indication: ARTERITIS
     Route: 048
  5. FLECAINIDE ACETATE [Suspect]
     Indication: ARRHYTHMIA
     Route: 048
  6. INSULIN [Suspect]
     Indication: DIABETES MELLITUS
     Route: 058

REACTIONS (2)
  - LOSS OF CONSCIOUSNESS [None]
  - MALAISE [None]
